FAERS Safety Report 23534424 (Version 3)
Quarter: 2024Q1

REPORT INFORMATION
  Report Type: Other
  Country: US (occurrence: None)
  Receive Date: 20240217
  Receipt Date: 20240329
  Transmission Date: 20240410
  Serious: Yes (Hospitalization, Other)
  Sender: FDA-Public Use
  Company Number: US-ROCHE-3509674

PATIENT
  Age: 39 Year
  Sex: Male
  Weight: 93.07 kg

DRUGS (1)
  1. EVRYSDI [Suspect]
     Active Substance: RISDIPLAM
     Indication: Spinal muscular atrophy
     Route: 048
     Dates: start: 2021, end: 202312

REACTIONS (5)
  - Upper limb fracture [Unknown]
  - Tibia fracture [Recovered/Resolved]
  - Localised infection [Unknown]
  - Product dose omission issue [Unknown]
  - Fall [Unknown]

NARRATIVE: CASE EVENT DATE: 20230501
